FAERS Safety Report 6694704-8 (Version None)
Quarter: 2010Q2

REPORT INFORMATION
  Report Type: 
  Country: None (occurrence: None)
  Receive Date: 20100423
  Receipt Date: 20100420
  Transmission Date: 20101027
  Serious: Yes (Hospitalization)
  Sender: FDA-Public Use
  Company Number: A0794821A

PATIENT
  Age: 57 Year
  Sex: Male
  Weight: 121.8 kg

DRUGS (1)
  1. AVANDIA [Suspect]
     Dates: start: 20020510, end: 20070503

REACTIONS (4)
  - ANGINA UNSTABLE [None]
  - GAIT DISTURBANCE [None]
  - HYPERTENSION [None]
  - MYOCARDIAL INFARCTION [None]
